FAERS Safety Report 8111662-X (Version None)
Quarter: 2012Q1

REPORT INFORMATION
  Report Type: 
  Country: None (occurrence: None)
  Receive Date: 20120202
  Receipt Date: 20120202
  Transmission Date: 20120608
  Serious: No
  Sender: FDA-Public Use
  Company Number: None

PATIENT
  Sex: Female
  Weight: 88.2 kg

DRUGS (1)
  1. GADOBUTROL [Suspect]
     Indication: NUCLEAR MAGNETIC RESONANCE IMAGING
     Dosage: 10 ML X 1 INTRAVENOUS
     Dates: start: 20111220

REACTIONS (3)
  - CONTRAST MEDIA REACTION [None]
  - VOMITING [None]
  - NAUSEA [None]
